FAERS Safety Report 7428825-9 (Version None)
Quarter: 2011Q2

REPORT INFORMATION
  Report Type: 
  Country: None (occurrence: None)
  Receive Date: 20110421
  Receipt Date: 20110414
  Transmission Date: 20111010
  Serious: Yes (Other)
  Sender: FDA-Public Use
  Company Number: AR-BRISTOL-MYERS SQUIBB COMPANY-15674773

PATIENT
  Age: 48 Year
  Sex: Female
  Weight: 64 kg

DRUGS (1)
  1. ORENCIA [Suspect]
     Dosage: RECEIVED 2 VIALS.FIVE WEEKS LATER RECEIVED ANOTHER INFUSION

REACTIONS (10)
  - HYPOTENSION [None]
  - MALAISE [None]
  - PAIN [None]
  - ASTHENIA [None]
  - VOMITING [None]
  - HEADACHE [None]
  - TREMOR [None]
  - CONFUSIONAL STATE [None]
  - NAUSEA [None]
  - DYSARTHRIA [None]
